FAERS Safety Report 24605717 (Version 7)
Quarter: 2025Q4

REPORT INFORMATION
  Report Type: Report from Study
  Country: TH (occurrence: TH)
  Receive Date: 20241111
  Receipt Date: 20251105
  Transmission Date: 20260117
  Serious: Yes (Death, Hospitalization, Other)
  Sender: TAKEDA
  Company Number: TH-TAKEDA-2023TUS105432

PATIENT
  Age: 31 Year
  Sex: Female

DRUGS (1)
  1. IXAZOMIB [Suspect]
     Active Substance: IXAZOMIB
     Indication: Plasma cell myeloma
     Dosage: 4 MILLIGRAM

REACTIONS (8)
  - Septic shock [Fatal]
  - Diarrhoea infectious [Fatal]
  - Respiratory failure [Fatal]
  - Gastrointestinal infection [Recovered/Resolved]
  - COVID-19 pneumonia [Unknown]
  - Pneumonia fungal [Unknown]
  - Inappropriate schedule of product administration [Unknown]
  - Illness [Unknown]

NARRATIVE: CASE EVENT DATE: 20251005
